FAERS Safety Report 19092823 (Version 2)
Quarter: 2021Q2

REPORT INFORMATION
  Report Type: Spontaneous
  Country: US (occurrence: US)
  Receive Date: 20210405
  Receipt Date: 20210519
  Transmission Date: 20210717
  Serious: No
  Sender: FDA-Public Use
  Company Number: US-PFIZER INC-2021301815

PATIENT
  Age: 20 Year
  Sex: Female

DRUGS (1)
  1. DEPO?PROVERA [Suspect]
     Active Substance: MEDROXYPROGESTERONE ACETATE
     Indication: CONTRACEPTION
     Dosage: 0.65 ML (EVERY 12?13 WEEKS) (STRENGTH 104MG/0.65ML)
     Route: 058
     Dates: start: 20210316

REACTIONS (2)
  - Drug dose omission by device [Unknown]
  - Needle issue [Unknown]
